FAERS Safety Report 16062245 (Version 1)
Quarter: 2019Q1

REPORT INFORMATION
  Report Type: Spontaneous
  Country: US (occurrence: US)
  Receive Date: 20190312
  Receipt Date: 20190312
  Transmission Date: 20190418
  Serious: No
  Sender: FDA-Public Use
  Company Number: US-PFIZER INC-2019100604

PATIENT
  Age: 69 Year
  Sex: Female
  Weight: 86.17 kg

DRUGS (3)
  1. IBRANCE [Suspect]
     Active Substance: PALBOCICLIB
     Indication: NEOPLASM MALIGNANT
     Dosage: 125 MG, CYCLIC (ONCE A DAY FOR 21 DAYS 7 DAYS OFF)
  2. NOVOLOG [Concomitant]
     Active Substance: INSULIN ASPART
     Indication: DIABETES MELLITUS
     Dosage: UNK (100 UNITS A DAY; BREAKFAST ITS 32, LUNCH IT^S 30, DINNER 32)
  3. METPROLOL [Concomitant]
     Active Substance: METOPROLOL
     Indication: BLOOD PRESSURE INCREASED
     Dosage: UNK

REACTIONS (2)
  - Dizziness [Unknown]
  - Eye discharge [Recovered/Resolved]
